FAERS Safety Report 5404815-2 (Version None)
Quarter: 2007Q3

REPORT INFORMATION
  Report Type: 
  Country: None (occurrence: None)
  Receive Date: 20070803
  Receipt Date: 20070730
  Transmission Date: 20080115
  Serious: Yes (Other)
  Sender: FDA-Public Use
  Company Number: PHEH2007US06453

PATIENT
  Age: 63 Year
  Sex: Female

DRUGS (6)
  1. GLEEVEC [Suspect]
     Indication: CHRONIC MYELOID LEUKAEMIA
     Dosage: 400 MG, QD
     Route: 048
     Dates: start: 20060710, end: 20061001
  2. GLEEVEC [Suspect]
     Route: 048
     Dates: start: 20061001
  3. ZESTRIL [Concomitant]
     Indication: HYPERTENSION
     Dosage: 5 MG, UNK
  4. PROPRANOLOL [Concomitant]
     Indication: HYPERTENSION
     Dosage: 20 MG, UNK
  5. PREVACID [Concomitant]
     Indication: GASTRITIS
     Dosage: 20 MG, UNK
  6. ECOTRIN [Concomitant]
     Indication: CORONARY ARTERY DISEASE
     Dosage: 81 MG, UNK

REACTIONS (4)
  - GRANULOCYTOPENIA [None]
  - OEDEMA [None]
  - THROMBOCYTHAEMIA [None]
  - WHITE BLOOD CELL COUNT DECREASED [None]
